FAERS Safety Report 19195117 (Version 2)
Quarter: 2021Q2

REPORT INFORMATION
  Report Type: Other
  Country: US (occurrence: US)
  Receive Date: 20210429
  Receipt Date: 20210527
  Transmission Date: 20210717
  Serious: No
  Sender: FDA-Public Use
  Company Number: US-NEUROCRINE BIOSCIENCES INC.-2021NBI01916

PATIENT

DRUGS (4)
  1. ZIPRASIDONE. [Concomitant]
     Active Substance: ZIPRASIDONE
     Indication: DEPRESSION
     Dosage: 60 MILLIGRAM, QD
     Route: 048
  2. INGREZZA [Suspect]
     Active Substance: VALBENAZINE
     Indication: TARDIVE DYSKINESIA
     Dosage: 40 MILLIGRAM, QD
     Route: 048
     Dates: start: 20210325, end: 20210510
  3. PAROXETINE. [Concomitant]
     Active Substance: PAROXETINE
     Indication: DEPRESSION
     Dosage: 20 MILLIGRAM, QD
     Route: 048
  4. ALPRAZOLAM. [Concomitant]
     Active Substance: ALPRAZOLAM
     Indication: ANXIETY
     Dosage: 0.5 MILLIGRAM, PRN AS NEEDED
     Route: 048

REACTIONS (3)
  - Anxiety [Recovered/Resolved]
  - Drug ineffective [Unknown]
  - Tardive dyskinesia [Not Recovered/Not Resolved]

NARRATIVE: CASE EVENT DATE: 2021
